FAERS Safety Report 5514556-9 (Version None)
Quarter: 2007Q4

REPORT INFORMATION
  Report Type: 
  Country: None (occurrence: None)
  Receive Date: 20071113
  Receipt Date: 20071109
  Transmission Date: 20080405
  Serious: Yes (Other)
  Sender: FDA-Public Use
  Company Number: A0694043A

PATIENT
  Sex: Female

DRUGS (1)
  1. AVANDIA [Suspect]
     Dates: start: 20000101

REACTIONS (5)
  - CARDIAC FAILURE CONGESTIVE [None]
  - FATIGUE [None]
  - GENERAL PHYSICAL HEALTH DETERIORATION [None]
  - INFLUENZA LIKE ILLNESS [None]
  - MYOCARDIAL INFARCTION [None]
